FAERS Safety Report 10485335 (Version 2)
Quarter: 2014Q3

REPORT INFORMATION
  Report Type: Spontaneous
  Country: BR (occurrence: BR)
  Receive Date: 20140930
  Receipt Date: 20140930
  Transmission Date: 20150326
  Serious: Yes (Other)
  Sender: FDA-Public Use
  Company Number: BR-PFIZER INC-2014256849

PATIENT
  Sex: Male

DRUGS (1)
  1. PRISTIQ EXTENDED RELEASE [Suspect]
     Active Substance: DESVENLAFAXINE SUCCINATE
     Indication: ANXIETY DISORDER
     Dosage: 50 MG, 1X/DAY
     Route: 048
     Dates: start: 201408, end: 201409

REACTIONS (7)
  - Dependence [Unknown]
  - Nervousness [Unknown]
  - Erectile dysfunction [Unknown]
  - Insomnia [Unknown]
  - Libido decreased [Unknown]
  - Drug ineffective for unapproved indication [Unknown]
  - Fatigue [Unknown]

NARRATIVE: CASE EVENT DATE: 2014
